FAERS Safety Report 5957125-9 (Version None)
Quarter: 2008Q4

REPORT INFORMATION
  Report Type: 
  Country: None (occurrence: None)
  Receive Date: 20081117
  Receipt Date: 20081117
  Transmission Date: 20090506
  Serious: Yes (Other)
  Sender: FDA-Public Use
  Company Number: None

PATIENT
  Age: 15 Year
  Sex: Male
  Weight: 51.4 kg

DRUGS (1)
  1. SINGULAIR [Suspect]
     Indication: BRONCHOSPASM
     Dosage: 10 MG ONCE DAILY PO
     Route: 048
     Dates: start: 20080213, end: 20080307

REACTIONS (1)
  - DEPRESSION [None]
